FAERS Safety Report 16816596 (Version 1)
Quarter: 2019Q3

REPORT INFORMATION
  Report Type: Spontaneous
  Country: US (occurrence: US)
  Receive Date: 20190917
  Receipt Date: 20190917
  Transmission Date: 20191005
  Serious: No
  Sender: FDA-Public Use
  Company Number: US-RECKITT BENCKISER HEALTHCARE INT LIMITED-RB-86571-2019

PATIENT
  Age: 70 Year
  Sex: Female

DRUGS (2)
  1. MUCINEX [Suspect]
     Active Substance: GUAIFENESIN
     Indication: PRODUCT USED FOR UNKNOWN INDICATION
     Dosage: 600 MILLIGRAM, BID, TOOK HALF TABLET
     Route: 065
     Dates: start: 20190612
  2. MUCINEX [Suspect]
     Active Substance: GUAIFENESIN
     Dosage: 600 MILLIGRAM, BID, TOOK HALF TABLET
     Route: 065
     Dates: start: 20190612

REACTIONS (2)
  - Wrong technique in product usage process [Unknown]
  - Product size issue [Unknown]
